FAERS Safety Report 16090734 (Version 1)
Quarter: 2019Q1

REPORT INFORMATION
  Report Type: Report from Study
  Country: IT (occurrence: IT)
  Receive Date: 20190319
  Receipt Date: 20190319
  Transmission Date: 20190418
  Serious: Yes (Hospitalization, Other)
  Sender: FDA-Public Use
  Company Number: IT-MYLANLABS-2019M1024174

PATIENT
  Age: 1 Year
  Sex: Female
  Weight: 10 kg

DRUGS (1)
  1. BISOPROLOL [Suspect]
     Active Substance: BISOPROLOL
     Indication: PRODUCT USED FOR UNKNOWN INDICATION
     Dosage: 5 MILLIGRAM, TOTAL
     Route: 048
     Dates: start: 20180427, end: 20180427

REACTIONS (3)
  - Drug abuse [Unknown]
  - Sinus tachycardia [Recovering/Resolving]
  - Accidental exposure to product [Recovering/Resolving]

NARRATIVE: CASE EVENT DATE: 20180427
